FAERS Safety Report 7795891-0 (Version None)
Quarter: 2011Q4

REPORT INFORMATION
  Report Type: 
  Country: None (occurrence: None)
  Receive Date: 20111004
  Receipt Date: 20110906
  Transmission Date: 20120403
  Serious: Yes (Other)
  Sender: FDA-Public Use
  Company Number: FR-ASTELLAS-2011EU006701

PATIENT
  Age: 49 Year
  Sex: Male
  Weight: 120 kg

DRUGS (13)
  1. ACYCLOVIR [Concomitant]
     Indication: IMMUNODEFICIENCY
     Dosage: 1500 MG, UNKNOWN/D
     Route: 042
     Dates: start: 20101112, end: 20101115
  2. INSULIN [Concomitant]
     Dosage: UNK
     Route: 065
  3. PROPOFOL [Concomitant]
     Dosage: UNK
     Route: 065
  4. GENTAMICIN [Concomitant]
     Indication: SEPTIC SHOCK
     Dosage: 500 MG, UNKNOWN/D
     Route: 042
     Dates: start: 20101112, end: 20101115
  5. NOREPINEPHRINE BITARTRATE [Concomitant]
     Dosage: UNK
     Route: 065
  6. ASPEGIC 325 [Concomitant]
     Dosage: UNK
     Route: 065
  7. METHYLPREDNISOLONE [Concomitant]
     Indication: LIVER TRANSPLANT
     Dosage: 20 MG, UNKNOWN/D
     Route: 042
     Dates: start: 20101104, end: 20101114
  8. CORDARONE [Concomitant]
     Dosage: UNK
     Route: 065
  9. HEPARIN [Concomitant]
     Dosage: UNK
     Route: 065
  10. MYCOPHENOLATE MOFETIL (CELLCEPT) [Concomitant]
     Indication: LIVER TRANSPLANT
     Dosage: 2 G, UNKNOWN/D
     Route: 048
     Dates: start: 20101104
  11. COLIMYCINE [Concomitant]
     Indication: SEPTIC SHOCK
     Dosage: 6000000 IU, UNKNOWN/D
     Route: 042
     Dates: start: 20101112, end: 20101117
  12. MICAFUNGIN INJECTION [Suspect]
     Indication: PROPHYLAXIS
     Dosage: 100 MG, UNKNOWN/D
     Route: 042
     Dates: start: 20101102, end: 20101114
  13. NEXIUM [Concomitant]
     Dosage: UNK
     Route: 065

REACTIONS (1)
  - CHOLESTASIS [None]
